FAERS Safety Report 14676547 (Version 1)
Quarter: 2018Q1

REPORT INFORMATION
  Report Type: Report from Study
  Country: CN (occurrence: CN)
  Receive Date: 20180324
  Receipt Date: 20180324
  Transmission Date: 20180509
  Serious: Yes (Other)
  Sender: FDA-Public Use
  Company Number: CN-ROCHE-2037790

PATIENT
  Sex: Female
  Weight: 58 kg

DRUGS (1)
  1. AVASTIN [Suspect]
     Active Substance: BEVACIZUMAB
     Indication: COLON CANCER
     Dosage: FORM OF ADMIN.TEXT :100 MG
     Route: 041
     Dates: start: 20160726

REACTIONS (2)
  - Ascites [Unknown]
  - Hydronephrosis [Unknown]
